FAERS Safety Report 14562198 (Version 2)
Quarter: 2018Q3

REPORT INFORMATION
  Report Type: Spontaneous
  Country: US (occurrence: US)
  Receive Date: 20180222
  Receipt Date: 20180711
  Transmission Date: 20181010
  Serious: Yes (Hospitalization, Other)
  Sender: FDA-Public Use
  Company Number: US-ABBVIE-18K-163-2262418-00

PATIENT
  Sex: Male

DRUGS (2)
  1. HUMIRA [Suspect]
     Active Substance: ADALIMUMAB
     Route: 058
  2. HUMIRA [Suspect]
     Active Substance: ADALIMUMAB
     Indication: PSORIASIS
     Dosage: ON AND OFF FOR YEARS.
     Route: 058

REACTIONS (5)
  - Cataract [Unknown]
  - Cataract operation complication [Unknown]
  - Eye infection intraocular [Unknown]
  - Blindness [Not Recovered/Not Resolved]
  - Post procedural sepsis [Unknown]

NARRATIVE: CASE EVENT DATE: 2017
